FAERS Safety Report 25930798 (Version 2)
Quarter: 2025Q4

REPORT INFORMATION
  Report Type: Spontaneous
  Country: CN (occurrence: CN)
  Receive Date: 20251016
  Receipt Date: 20251028
  Transmission Date: 20260117
  Serious: Yes (Other)
  Sender: NOVARTIS
  Company Number: CN-002147023-NVSC2025CN157411

PATIENT
  Age: 51 Year
  Sex: Male
  Weight: 80 kg

DRUGS (1)
  1. SECUKINUMAB [Suspect]
     Active Substance: SECUKINUMAB
     Indication: Psoriasis
     Dosage: 300 MG, QD
     Route: 058
     Dates: start: 20250917, end: 20250917

REACTIONS (4)
  - Injection site erythema [Recovered/Resolved]
  - Rash maculo-papular [Unknown]
  - Pruritus [Recovering/Resolving]
  - Skin swelling [Unknown]

NARRATIVE: CASE EVENT DATE: 20250917
